FAERS Safety Report 25703610 (Version 1)
Quarter: 2025Q3

REPORT INFORMATION
  Report Type: Spontaneous
  Country: US (occurrence: US)
  Receive Date: 20250820
  Receipt Date: 20250820
  Transmission Date: 20251021
  Serious: Yes (Other)
  Sender: BRISTOL-MYERS SQUIBB COMPANY
  Company Number: US-BRISTOL-MYERS SQUIBB COMPANY-2025-114121

PATIENT
  Age: 83 Year
  Sex: Female

DRUGS (1)
  1. REVLIMID [Suspect]
     Active Substance: LENALIDOMIDE
     Indication: Product used for unknown indication
     Dosage: QD FOR 21D ON, 7D OFF
     Route: 048

REACTIONS (6)
  - Fall [Unknown]
  - Arthritis [Unknown]
  - Pollakiuria [Unknown]
  - Sleep disorder [Unknown]
  - Breast disorder [Unknown]
  - Asthenia [Unknown]
